FAERS Safety Report 9279269 (Version 2)
Quarter: 2013Q2

REPORT INFORMATION
  Report Type: Spontaneous
  Country: BE (occurrence: BE)
  Receive Date: 20130508
  Receipt Date: 20130508
  Transmission Date: 20140414
  Serious: Yes (Death)
  Sender: FDA-Public Use
  Company Number: BE-BAXTER-2013BAX014373

PATIENT
  Sex: Male

DRUGS (2)
  1. DIANEAL PD4 GLUCOSE 1,36 % (13,6 MG/ML), SOLUTION POUR DIALYSE P?RITON [Suspect]
     Indication: PERITONEAL DIALYSIS
     Route: 033
  2. EXTRANEAL, SOLUTION POUR DIALYSE P?RITON?ALE [Suspect]
     Indication: PERITONEAL DIALYSIS
     Route: 033

REACTIONS (1)
  - General physical health deterioration [Fatal]
